FAERS Safety Report 6535629-8 (Version None)
Quarter: 2010Q1

REPORT INFORMATION
  Report Type: 
  Country: None (occurrence: None)
  Receive Date: 20100113
  Receipt Date: 20100105
  Transmission Date: 20100710
  Serious: Yes (Hospitalization)
  Sender: FDA-Public Use
  Company Number: PHHY2009DE56315

PATIENT
  Sex: Female
  Weight: 49 kg

DRUGS (3)
  1. ACLASTA [Suspect]
     Indication: OSTEOPOROSIS
     Dosage: 5 MG, YEARLY
     Route: 042
     Dates: start: 20091207, end: 20091207
  2. CALCIUM [Concomitant]
  3. VITAMIN D3 [Concomitant]

REACTIONS (5)
  - CARDIOVASCULAR DISORDER [None]
  - DYSPNOEA [None]
  - HYPOTENSION [None]
  - IDIOPATHIC PULMONARY FIBROSIS [None]
  - MUSCLE SPASTICITY [None]
